FAERS Safety Report 16664333 (Version 1)
Quarter: 2019Q3

REPORT INFORMATION
  Report Type: Spontaneous
  Country: NO (occurrence: NO)
  Receive Date: 20190802
  Receipt Date: 20190802
  Transmission Date: 20191004
  Serious: Yes (Life-Threatening)
  Sender: FDA-Public Use
  Company Number: NO-TEVA-2019-NO-1086777

PATIENT
  Age: 12 Year
  Sex: Female

DRUGS (5)
  1. NOREPINEPHRINE. [Concomitant]
     Active Substance: NOREPINEPHRINE
     Dosage: 0.1 MCG/KG/MINUTE
  2. SUXAMETHONIUM [Concomitant]
     Active Substance: SUCCINYLCHOLINE
     Indication: ENDOTRACHEAL INTUBATION
     Dosage: 50 MG
  3. KETAMINE [Concomitant]
     Active Substance: KETAMINE
     Dosage: 25 + 50 MG
  4. FENTANYL. [Concomitant]
     Active Substance: FENTANYL
     Dosage: 0.2 MG
  5. DEXMEDETOMIDINE. [Suspect]
     Active Substance: DEXMEDETOMIDINE
     Indication: SEDATION
     Dosage: 0.4-1.0 MCG/KG/HOUR, 1 DF
     Dates: start: 20181118, end: 20181118

REACTIONS (2)
  - Bradycardia [Recovered/Resolved]
  - Cardiac arrest [Recovered/Resolved]

NARRATIVE: CASE EVENT DATE: 20181118
